FAERS Safety Report 14977614 (Version 1)
Quarter: 2018Q2

REPORT INFORMATION
  Report Type: Spontaneous
  Country: US (occurrence: US)
  Receive Date: 20180606
  Receipt Date: 20180606
  Transmission Date: 20180711
  Serious: No
  Sender: FDA-Public Use
  Company Number: US-TAKEDA-2018MPI006250

PATIENT
  Sex: Male
  Weight: 72.57 kg

DRUGS (1)
  1. NINLARO [Suspect]
     Active Substance: IXAZOMIB CITRATE
     Indication: PLASMA CELL MYELOMA
     Dosage: 4 MG, UNK
     Route: 048
     Dates: start: 201801

REACTIONS (7)
  - Vomiting [Unknown]
  - Light chain analysis increased [Unknown]
  - Constipation [Unknown]
  - Asthenia [Unknown]
  - Nausea [Unknown]
  - Abdominal distension [Unknown]
  - Diarrhoea [Unknown]
